FAERS Safety Report 9885505 (Version 2)
Quarter: 2014Q1

REPORT INFORMATION
  Report Type: Spontaneous
  Country: US (occurrence: US)
  Receive Date: 20140210
  Receipt Date: 20140326
  Transmission Date: 20141002
  Serious: Yes (Disabling)
  Sender: FDA-Public Use
  Company Number: US-SA-2014SA015841

PATIENT
  Age: 56 Year
  Sex: Female
  Weight: 81.19 kg

DRUGS (6)
  1. LANTUS [Suspect]
     Indication: DIABETES MELLITUS
     Dosage: TAKEN FROM: 15 YEARS AGO. DOSE:90 UNIT(S)
     Route: 051
     Dates: start: 1987, end: 2014
  2. METFORMIN [Concomitant]
     Indication: DIABETES MELLITUS
     Dates: start: 1987
  3. OMEPRAZOLE [Concomitant]
     Indication: GASTROOESOPHAGEAL REFLUX DISEASE
  4. ASPIRIN ^BAYER^ [Concomitant]
     Indication: BLOOD DISORDER
     Dates: start: 2009
  5. OXYCODONE [Concomitant]
     Indication: BACK PAIN
  6. QVAR [Concomitant]
     Indication: ASTHMA
     Dates: start: 1985

REACTIONS (2)
  - Back disorder [Unknown]
  - Tremor [Unknown]
